FAERS Safety Report 8071984-8 (Version None)
Quarter: 2012Q1

REPORT INFORMATION
  Report Type: 
  Country: None (occurrence: None)
  Receive Date: 20120124
  Receipt Date: 20120124
  Transmission Date: 20120608
  Serious: Yes (Other)
  Sender: FDA-Public Use
  Company Number: None

PATIENT
  Sex: Female
  Weight: 68.0396 kg

DRUGS (1)
  1. EXEMESTANE [Suspect]
     Indication: BREAST CANCER
     Dosage: AROMASIN 25MG DAILY PO
     Route: 048
     Dates: start: 20110501

REACTIONS (3)
  - NAUSEA [None]
  - ARTHRALGIA [None]
  - INSOMNIA [None]
